FAERS Safety Report 6636172-8 (Version None)
Quarter: 2010Q1

REPORT INFORMATION
  Report Type: 
  Country: None (occurrence: None)
  Receive Date: 20100311
  Receipt Date: 20100301
  Transmission Date: 20100710
  Serious: Yes (Death)
  Sender: FDA-Public Use
  Company Number: OPIR20100009

PATIENT
  Age: 42 Year
  Sex: Male

DRUGS (7)
  1. OPANA [Suspect]
     Indication: DRUG USE FOR UNKNOWN INDICATION
     Dosage: ORAL
     Route: 048
  2. OXYCODONE (OXYCODONE) (UNKNOWN) [Suspect]
     Indication: DRUG USE FOR UNKNOWN INDICATION
  3. HYDROCODONE (HYDROCODONE) [Suspect]
     Indication: DRUG USE FOR UNKNOWN INDICATION
  4. DIHYDROCODEINE (DIPHYDROCODEINE) (UNKNOWN) [Suspect]
     Indication: DRUG USE FOR UNKNOWN INDICATION
  5. CITALOPRAM HYDROBROMIDE [Suspect]
     Indication: DRUG USE FOR UNKNOWN INDICATION
  6. TETRAHYDROCANABINOL (TETRAHYDROCANNABINOL) (UNKNOWN) [Suspect]
     Indication: DRUG USE FOR UNKNOWN INDICATION
  7. LORAZEPAM [Suspect]
     Indication: DRUG USE FOR UNKNOWN INDICATION

REACTIONS (2)
  - COMPLETED SUICIDE [None]
  - DRUG TOXICITY [None]
